FAERS Safety Report 8390402-3 (Version None)
Quarter: 2012Q2

REPORT INFORMATION
  Report Type: 
  Country: None (occurrence: None)
  Receive Date: 20120517
  Receipt Date: 20120507
  Transmission Date: 20120825
  Serious: Yes (Other)
  Sender: FDA-Public Use
  Company Number: B08010874A

PATIENT
  Sex: 0

DRUGS (6)
  1. LEVOFLOXACIN [Suspect]
     Indication: ANTIBIOTIC PROPHYLAXIS
  2. THIOTEPA [Suspect]
     Indication: HAEMATOLOGICAL MALIGNANCY
     Dosage: 10 MG/KG/
  3. FLUDARABINE PHOSPHATE [Suspect]
     Indication: HAEMATOLOGICAL MALIGNANCY
     Dosage: 160 MG/M2/
  4. VALACICLOVIR [Suspect]
     Indication: ANTIVIRAL PROPHYLAXIS
  5. MELPHALAN HYDROCHLORIDE [Suspect]
     Indication: HAEMATOLOGICAL MALIGNANCY
     Dosage: 140 MG/M2/
  6. RABBIT ANTITHYMOCYTE IMMU (FORMULATION UNKNOWN) (RABBIT ANTITHYMOCYTE [Suspect]
     Indication: HAEMATOLOGICAL MALIGNANCY

REACTIONS (1)
  - PANCREATITIS ACUTE [None]
